FAERS Safety Report 8269668-6 (Version None)
Quarter: 2012Q2

REPORT INFORMATION
  Report Type: 
  Country: None (occurrence: None)
  Receive Date: 20120405
  Receipt Date: 20120322
  Transmission Date: 20120825
  Serious: Yes (Life-Threatening, Hospitalization, Other)
  Sender: FDA-Public Use
  Company Number: JPI-P-020309

PATIENT
  Age: 18 Year
  Sex: Male
  Weight: 98.4306 kg

DRUGS (12)
  1. XYREM [Suspect]
     Indication: SOMNOLENCE
     Dosage: 4.5;9 GM (2.25;4.5;5;2.5;5 GM, 2 IN 1 D), ORAL
     Route: 048
     Dates: start: 20110214, end: 20110101
  2. XYREM [Suspect]
     Indication: NARCOLEPSY
     Dosage: 4.5;9 GM (2.25;4.5;5;2.5;5 GM, 2 IN 1 D), ORAL
     Route: 048
     Dates: start: 20110214, end: 20110101
  3. XYREM [Suspect]
     Indication: SOMNOLENCE
     Dosage: 4.5;9 GM (2.25;4.5;5;2.5;5 GM, 2 IN 1 D), ORAL
     Route: 048
     Dates: start: 20120307, end: 20120307
  4. XYREM [Suspect]
     Indication: NARCOLEPSY
     Dosage: 4.5;9 GM (2.25;4.5;5;2.5;5 GM, 2 IN 1 D), ORAL
     Route: 048
     Dates: start: 20120307, end: 20120307
  5. XYREM [Suspect]
     Indication: SOMNOLENCE
     Dosage: 4.5;9 GM (2.25;4.5;5;2.5;5 GM, 2 IN 1 D), ORAL
     Route: 048
     Dates: start: 20111101
  6. XYREM [Suspect]
     Indication: NARCOLEPSY
     Dosage: 4.5;9 GM (2.25;4.5;5;2.5;5 GM, 2 IN 1 D), ORAL
     Route: 048
     Dates: start: 20111101
  7. XYREM [Suspect]
     Indication: SOMNOLENCE
     Dosage: 4.5;9 GM (2.25;4.5;5;2.5;5 GM, 2 IN 1 D), ORAL
     Route: 048
     Dates: end: 20120306
  8. XYREM [Suspect]
     Indication: NARCOLEPSY
     Dosage: 4.5;9 GM (2.25;4.5;5;2.5;5 GM, 2 IN 1 D), ORAL
     Route: 048
     Dates: end: 20120306
  9. XYREM [Suspect]
     Indication: SOMNOLENCE
     Dosage: 4.5;9 GM (2.25;4.5;5;2.5;5 GM, 2 IN 1 D), ORAL
     Route: 048
     Dates: start: 20110101, end: 20110410
  10. XYREM [Suspect]
     Indication: NARCOLEPSY
     Dosage: 4.5;9 GM (2.25;4.5;5;2.5;5 GM, 2 IN 1 D), ORAL
     Route: 048
     Dates: start: 20110101, end: 20110410
  11. XYREM [Suspect]
     Indication: SOMNOLENCE
     Dosage: 4.5;9 GM (2.25;4.5;5;2.5;5 GM, 2 IN 1 D), ORAL
     Route: 048
     Dates: start: 20110411
  12. XYREM [Suspect]
     Indication: NARCOLEPSY
     Dosage: 4.5;9 GM (2.25;4.5;5;2.5;5 GM, 2 IN 1 D), ORAL
     Route: 048
     Dates: start: 20110411

REACTIONS (10)
  - DEPRESSION [None]
  - HYPERHIDROSIS [None]
  - SUICIDE ATTEMPT [None]
  - HYPERTENSION [None]
  - HALLUCINATION [None]
  - PALPITATIONS [None]
  - INTENTIONAL OVERDOSE [None]
  - CONVULSION [None]
  - BLOOD CREATINE PHOSPHOKINASE INCREASED [None]
  - ANXIETY [None]
